FAERS Safety Report 12207077 (Version 4)
Quarter: 2019Q1

REPORT INFORMATION
  Report Type: Spontaneous
  Country: US (occurrence: US)
  Receive Date: 20160324
  Receipt Date: 20190301
  Transmission Date: 20190417
  Serious: Yes (Other)
  Sender: FDA-Public Use
  Company Number: US-JNJFOC-20160306418

PATIENT
  Age: 47 Year
  Sex: Female
  Weight: 56.7 kg

DRUGS (23)
  1. FLEXERIL [Concomitant]
     Active Substance: CYCLOBENZAPRINE HYDROCHLORIDE
     Indication: HIP SURGERY
     Dates: start: 20170313
  2. DEXTROAMPHETAMINE. [Concomitant]
     Active Substance: DEXTROAMPHETAMINE
     Indication: BRAIN INJURY
  3. ZANAFLEX [Concomitant]
     Active Substance: TIZANIDINE HYDROCHLORIDE
     Indication: PAIN
  4. DEXTROAMPHETAMINE. [Concomitant]
     Active Substance: DEXTROAMPHETAMINE
     Indication: BRAIN INJURY
  5. DURAGESIC [Suspect]
     Active Substance: FENTANYL
     Indication: SPINAL CORD INJURY
     Route: 062
  6. DURAGESIC [Suspect]
     Active Substance: FENTANYL
     Indication: PAIN
     Route: 062
  7. FENTANYL TRANSDERMAL SYSTEM [Suspect]
     Active Substance: FENTANYL
     Indication: SPINAL CORD INJURY
     Route: 062
     Dates: start: 2002
  8. NATURE-THROID [Concomitant]
     Active Substance: THYROID, PORCINE
     Dates: start: 201205
  9. CLONAZEPAM. [Concomitant]
     Active Substance: CLONAZEPAM
     Indication: INSOMNIA
     Route: 048
  10. DURAGESIC [Suspect]
     Active Substance: FENTANYL
     Indication: PAIN
     Route: 062
     Dates: start: 2000
  11. FENTANYL TRANSDERMAL SYSTEM [Suspect]
     Active Substance: FENTANYL
     Indication: SPINAL CORD INJURY
     Route: 062
  12. CLONAZEPAM. [Concomitant]
     Active Substance: CLONAZEPAM
     Indication: INSOMNIA
     Route: 048
  13. DURAGESIC [Suspect]
     Active Substance: FENTANYL
     Indication: SPINAL CORD INJURY
     Route: 062
     Dates: start: 2000
  14. FENTANYL TRANSDERMAL SYSTEM [Suspect]
     Active Substance: FENTANYL
     Indication: PAIN
     Route: 062
     Dates: start: 2002
  15. FENTANYL TRANSDERMAL SYSTEM [Suspect]
     Active Substance: FENTANYL
     Indication: PAIN
     Route: 062
  16. DURAGESIC [Suspect]
     Active Substance: FENTANYL
     Indication: SPINAL CORD INJURY
     Route: 062
     Dates: start: 20120201
  17. DURAGESIC [Suspect]
     Active Substance: FENTANYL
     Indication: PAIN
     Route: 062
     Dates: start: 20120201
  18. CELEBREX [Concomitant]
     Active Substance: CELECOXIB
     Indication: INFLAMMATION
     Dates: start: 20170313
  19. TRAZODONE [Concomitant]
     Active Substance: TRAZODONE HYDROCHLORIDE
  20. DURAGESIC [Suspect]
     Active Substance: FENTANYL
     Indication: PAIN
     Route: 062
  21. OXYCODONE [Concomitant]
     Active Substance: OXYCODONE
     Dates: start: 2000
  22. DURAGESIC [Suspect]
     Active Substance: FENTANYL
     Indication: SPINAL CORD INJURY
     Route: 062
  23. CYMBALTA [Concomitant]
     Active Substance: DULOXETINE HYDROCHLORIDE
     Indication: ANXIETY

REACTIONS (7)
  - Product dose omission [Unknown]
  - Weight increased [Not Recovered/Not Resolved]
  - Bone cyst [Unknown]
  - Procedural complication [Recovered/Resolved]
  - Hip surgery [Unknown]
  - Product adhesion issue [Unknown]
  - Joint injury [Unknown]

NARRATIVE: CASE EVENT DATE: 2000
